FAERS Safety Report 8373105-0 (Version None)
Quarter: 2012Q2

REPORT INFORMATION
  Report Type: 
  Country: None (occurrence: None)
  Receive Date: 20120521
  Receipt Date: 20120515
  Transmission Date: 20120825
  Serious: No
  Sender: FDA-Public Use
  Company Number: US-PFIZER INC-2012118598

PATIENT
  Sex: Male
  Weight: 95.24 kg

DRUGS (8)
  1. VIAGRA [Suspect]
     Indication: SEXUAL DYSFUNCTION
     Dosage: 50 MG, AS NEEDED
     Route: 048
     Dates: start: 20120513
  2. SIMVASTATIN [Concomitant]
     Dosage: 20 MG, UNK
  3. TERAZOSIN [Concomitant]
     Dosage: 10 MG, UNK
  4. ALLOPURINOL [Concomitant]
     Indication: GOUT
     Dosage: 300 MG, UNK
  5. DIOVAN [Concomitant]
     Dosage: 12.5 MG, UNK
  6. PERCOCET [Concomitant]
     Indication: BACK PAIN
     Dosage: UNK
  7. OMEPRAZOLE [Concomitant]
     Dosage: 20 MG, UNK
  8. SYNTHROID [Concomitant]
     Dosage: 0.88 MG, UNK

REACTIONS (3)
  - ABDOMINAL DISCOMFORT [None]
  - HEADACHE [None]
  - DRUG INEFFECTIVE [None]
